FAERS Safety Report 10482415 (Version 2)
Quarter: 2014Q4

REPORT INFORMATION
  Report Type: Spontaneous
  Country: US (occurrence: US)
  Receive Date: 20140929
  Receipt Date: 20141125
  Transmission Date: 20150528
  Serious: Yes (Hospitalization, Other)
  Sender: FDA-Public Use
  Company Number: US-BAYER-2014-143580

PATIENT
  Age: 36 Year
  Sex: Female
  Weight: 66.67 kg

DRUGS (4)
  1. MIRENA [Suspect]
     Active Substance: LEVONORGESTREL
     Indication: MENORRHAGIA
     Dosage: 20 MCG/24HR, CONT
     Dates: start: 20071205, end: 20120925
  2. DIFLUCAN [Concomitant]
     Active Substance: FLUCONAZOLE
  3. ATIVAN [Concomitant]
     Active Substance: LORAZEPAM
  4. TORADOL [Concomitant]
     Active Substance: KETOROLAC TROMETHAMINE

REACTIONS (14)
  - Injury [None]
  - Emotional distress [None]
  - Fear [None]
  - Depression [None]
  - Pelvic pain [None]
  - Device dislocation [None]
  - Uterine perforation [None]
  - Anxiety [None]
  - Depressed mood [None]
  - Device issue [None]
  - Vaginal haemorrhage [None]
  - Medical device discomfort [None]
  - Internal injury [None]
  - Abdominal pain lower [None]

NARRATIVE: CASE EVENT DATE: 20071205
